FAERS Safety Report 5031519-0 (Version None)
Quarter: 2006Q2

REPORT INFORMATION
  Report Type: 
  Country: None (occurrence: None)
  Receive Date: 20060616
  Receipt Date: 20060606
  Transmission Date: 20061013
  Serious: No
  Sender: FDA-Public Use
  Company Number: 226121

PATIENT
  Age: 59 Year
  Sex: Male
  Weight: 86.2 kg

DRUGS (12)
  1. XOLAIR [Suspect]
     Indication: ASTHMA
     Dosage: 375 MG, Q2W, SUBCUTANEOUS
     Route: 058
     Dates: start: 20050614, end: 20060428
  2. SPIRONOLACTONE [Concomitant]
  3. PROZAC [Concomitant]
  4. ASTELIN [Concomitant]
  5. CLARINEX [Concomitant]
  6. UNIPHYL [Concomitant]
  7. ALBUTEROL (ALBUTEROL/ALBUTEROL SULFATE) [Concomitant]
  8. ADVAIR DISKUS 100/50 [Concomitant]
  9. QVAR 40 [Concomitant]
  10. XOPENEX [Concomitant]
  11. SPIRIVA [Concomitant]
  12. MICARDIS [Concomitant]

REACTIONS (1)
  - DIVERTICULITIS [None]
